FAERS Safety Report 18818034 (Version 3)
Quarter: 2021Q1

REPORT INFORMATION
  Report Type: Report from Study
  Country: TH (occurrence: TH)
  Receive Date: 20210201
  Receipt Date: 20210227
  Transmission Date: 20210419
  Serious: Yes (Hospitalization, Other)
  Sender: FDA-Public Use
  Company Number: NVSC2020TH203771

PATIENT
  Sex: Female

DRUGS (6)
  1. KISQALI [Suspect]
     Active Substance: RIBOCICLIB
     Dosage: 2 DF, BID (EVERY DAY FOR 2 WEEKS AND STOPPED USING FOR 2 WEEKS)
     Route: 048
     Dates: start: 202005
  2. KISQALI [Suspect]
     Active Substance: RIBOCICLIB
     Dosage: 200 MG, BID (2 TABS/DAY)
     Route: 048
     Dates: end: 20210119
  3. KISQALI [Suspect]
     Active Substance: RIBOCICLIB
     Dosage: 1 DF, QD
     Route: 065
  4. FASLODEX [Concomitant]
     Active Substance: FULVESTRANT
     Indication: PRODUCT USED FOR UNKNOWN INDICATION
     Dosage: UNK
     Route: 065
  5. FOLIC ACID. [Concomitant]
     Active Substance: FOLIC ACID
     Indication: PRODUCT USED FOR UNKNOWN INDICATION
     Dosage: UNK, QD
     Route: 065
  6. KISQALI [Suspect]
     Active Substance: RIBOCICLIB
     Indication: BREAST CANCER METASTATIC
     Dosage: 3 DF, TID (EVERY DAY FOR 3WEEKS AND STOPPED USING FOR 1 WEEK) (AUG OR SEP 2019)
     Route: 048

REACTIONS (11)
  - Abnormal faeces [Unknown]
  - Anaemia [Unknown]
  - Swelling [Unknown]
  - White blood cell count decreased [Unknown]
  - Haematocrit decreased [Unknown]
  - Pancytopenia [Unknown]
  - Blood count abnormal [Unknown]
  - Myelosuppression [Unknown]
  - Fall [Unknown]
  - Platelet count decreased [Unknown]
  - Underdose [Unknown]
